FAERS Safety Report 10048396 (Version 1)
Quarter: 2014Q1

REPORT INFORMATION
  Report Type: Spontaneous
  Country: US (occurrence: US)
  Receive Date: 20140331
  Receipt Date: 20140331
  Transmission Date: 20141002
  Serious: No
  Sender: FDA-Public Use
  Company Number: US-BAYER-2014-040111

PATIENT
  Age: 59 Year
  Sex: Female
  Weight: 72.56 kg

DRUGS (2)
  1. ALEVE LIQUID GELS [Suspect]
     Dosage: 1 DF, BID
     Route: 048
     Dates: start: 20140308, end: 20140312
  2. ALEVE CAPLET [Suspect]
     Dosage: 1 DF, PRN
     Route: 048
     Dates: start: 2011

REACTIONS (4)
  - Nausea [Not Recovered/Not Resolved]
  - Tremor [Not Recovered/Not Resolved]
  - Asthenia [Not Recovered/Not Resolved]
  - Incorrect drug administration duration [None]
